FAERS Safety Report 8492548-8 (Version None)
Quarter: 2012Q3

REPORT INFORMATION
  Report Type: 
  Country: None (occurrence: None)
  Receive Date: 20120706
  Receipt Date: 20120625
  Transmission Date: 20120928
  Serious: Yes (Other)
  Sender: FDA-Public Use
  Company Number: US-ROCHE-1059588

PATIENT
  Sex: Female
  Weight: 71.278 kg

DRUGS (3)
  1. CARBOPLATIN [Concomitant]
     Indication: BREAST CANCER
     Route: 042
     Dates: start: 20111101, end: 20120314
  2. HERCEPTIN [Suspect]
     Indication: BREAST CANCER
     Route: 042
     Dates: start: 20111101
  3. TAXOTERE [Concomitant]
     Indication: BREAST CANCER
     Route: 042
     Dates: start: 20111101, end: 20120314

REACTIONS (5)
  - GINGIVAL PAIN [None]
  - PARAESTHESIA [None]
  - SENSITIVITY OF TEETH [None]
  - TOOTHACHE [None]
  - HYPOAESTHESIA [None]
